FAERS Safety Report 5797555-1 (Version None)
Quarter: 2008Q3

REPORT INFORMATION
  Report Type: 
  Country: None (occurrence: None)
  Receive Date: 20080702
  Receipt Date: 20080625
  Transmission Date: 20090109
  Serious: Yes (Other)
  Sender: FDA-Public Use
  Company Number: US-BAYER-200826668NA

PATIENT
  Sex: Female

DRUGS (1)
  1. MIRENA [Suspect]
     Indication: CONTRACEPTION
     Route: 015
     Dates: start: 20071008, end: 20080624

REACTIONS (2)
  - CERVICAL DYSPLASIA [None]
  - INTRA-UTERINE CONTRACEPTIVE DEVICE EXPELLED [None]
